FAERS Safety Report 23063476 (Version 4)
Quarter: 2023Q4

REPORT INFORMATION
  Report Type: Spontaneous
  Country: GB (occurrence: GB)
  Receive Date: 20231013
  Receipt Date: 20231114
  Transmission Date: 20240110
  Serious: No
  Sender: FDA-Public Use
  Company Number: GB-PFIZER INC-PV202300158581

PATIENT
  Sex: Female

DRUGS (1)
  1. FRAGMIN [Suspect]
     Active Substance: DALTEPARIN SODIUM
     Dosage: UNK

REACTIONS (5)
  - Injection site pain [Unknown]
  - Needle issue [Unknown]
  - Poor quality device used [Unknown]
  - Device difficult to use [Unknown]
  - Injection site discomfort [Unknown]
